FAERS Safety Report 24791698 (Version 1)
Quarter: 2024Q4

REPORT INFORMATION
  Report Type: Spontaneous
  Country: BE (occurrence: BE)
  Receive Date: 20241231
  Receipt Date: 20241231
  Transmission Date: 20250114
  Serious: Yes (Hospitalization)
  Sender: JOHNSON AND JOHNSON
  Company Number: BE-JNJFOC-20241261688

PATIENT
  Sex: Male
  Weight: 70 kg

DRUGS (1)
  1. RISPERDAL [Suspect]
     Active Substance: RISPERIDONE
     Indication: Product used for unknown indication
     Dosage: DOSE: 10.00 PIECE(S), INTERVAL 4H AGO AND FREQUENCY ONCE
     Route: 048

REACTIONS (1)
  - Intentional product use issue [Unknown]
